FAERS Safety Report 15478516 (Version 3)
Quarter: 2019Q1

REPORT INFORMATION
  Report Type: Report from Study
  Country: US (occurrence: US)
  Receive Date: 20181009
  Receipt Date: 20190313
  Transmission Date: 20190417
  Serious: Yes (Other)
  Sender: FDA-Public Use
  Company Number: PHEH2018US041056

PATIENT
  Age: 63 Year
  Sex: Female

DRUGS (8)
  1. AFINITOR [Interacting]
     Active Substance: EVEROLIMUS
     Dosage: 10 MG, DAILY
     Route: 065
  2. LISINOPRIL. [Interacting]
     Active Substance: LISINOPRIL
     Indication: PRODUCT USED FOR UNKNOWN INDICATION
     Route: 065
  3. HYDROCHLOROTHIAZIDE. [Concomitant]
     Active Substance: HYDROCHLOROTHIAZIDE
     Indication: PRODUCT USED FOR UNKNOWN INDICATION
     Dosage: 25 MG, UNK
     Route: 065
  4. VITAMIN D3 [Concomitant]
     Active Substance: CHOLECALCIFEROL
     Indication: PRODUCT USED FOR UNKNOWN INDICATION
     Route: 065
  5. AFINITOR [Suspect]
     Active Substance: EVEROLIMUS
     Indication: LUNG CANCER METASTATIC
     Dosage: 10 MG, DAILY
     Route: 065
     Dates: start: 201712
  6. LOSARTAN POTASSIUM. [Interacting]
     Active Substance: LOSARTAN POTASSIUM
     Indication: PRODUCT USED FOR UNKNOWN INDICATION
     Route: 065
  7. LETROZOLE. [Concomitant]
     Active Substance: LETROZOLE
     Indication: PRODUCT USED FOR UNKNOWN INDICATION
     Route: 065
  8. VITAMIN B12 [Concomitant]
     Active Substance: CYANOCOBALAMIN
     Indication: PRODUCT USED FOR UNKNOWN INDICATION
     Route: 065

REACTIONS (9)
  - Feeling abnormal [Unknown]
  - Dyspnoea [Unknown]
  - Face oedema [Unknown]
  - Speech disorder [Unknown]
  - Spinal flattening [Unknown]
  - Drug interaction [Unknown]
  - Joint space narrowing [Unknown]
  - Diarrhoea [Unknown]
  - Diabetes mellitus [Unknown]

NARRATIVE: CASE EVENT DATE: 201803
